FAERS Safety Report 8152904-4 (Version None)
Quarter: 2012Q1

REPORT INFORMATION
  Report Type: 
  Country: None (occurrence: None)
  Receive Date: 20120221
  Receipt Date: 20120207
  Transmission Date: 20120608
  Serious: Yes (Hospitalization)
  Sender: FDA-Public Use
  Company Number: US-RB-034676-12

PATIENT
  Age: 39 Year
  Sex: Female

DRUGS (3)
  1. DELSYM [Suspect]
     Indication: NASOPHARYNGITIS
     Dosage: TAKING 1 DOSE EVERY 12 HOURS
     Route: 048
     Dates: start: 20120126, end: 20120128
  2. CLONOPIN [Concomitant]
     Indication: ANXIETY
  3. DELSYM [Suspect]
     Indication: COUGH
     Dosage: TAKING 1 DOSE EVERY 12 HOURS
     Route: 048
     Dates: start: 20120126, end: 20120128

REACTIONS (6)
  - BLOOD PRESSURE INCREASED [None]
  - PALLOR [None]
  - PNEUMONIA [None]
  - HYPERHIDROSIS [None]
  - ERYTHEMA [None]
  - DIABETES MELLITUS [None]
